FAERS Safety Report 4851283-5 (Version None)
Quarter: 2005Q4

REPORT INFORMATION
  Report Type: 
  Country: None (occurrence: None)
  Receive Date: 20051209
  Receipt Date: 20051206
  Transmission Date: 20060501
  Serious: Yes (Hospitalization)
  Sender: FDA-Public Use
  Company Number: 2005110026

PATIENT
  Age: 16 Year
  Sex: Male

DRUGS (3)
  1. TALOXA 400MG TABLETS (FELBAMATE) [Suspect]
     Indication: EPILEPSY
     Dosage: 400 MG QD, ORAL
     Route: 048
     Dates: start: 20050315, end: 20051016
  2. LAMICTAL [Concomitant]
  3. KEPPRA [Concomitant]

REACTIONS (2)
  - CYTOLYTIC HEPATITIS [None]
  - GASTROINTESTINAL DISORDER [None]
